FAERS Safety Report 6020617-0 (Version None)
Quarter: 2008Q4

REPORT INFORMATION
  Report Type: 
  Country: None (occurrence: None)
  Receive Date: 20081224
  Receipt Date: 20081224
  Transmission Date: 20090506
  Serious: Yes (Other)
  Sender: FDA-Public Use
  Company Number: None

PATIENT
  Sex: Female
  Weight: 86.1834 kg

DRUGS (2)
  1. RESTASIS [Suspect]
     Indication: DRY EYE
     Dosage: 1 DROP EACH EYE 12 HOURS APART
     Dates: start: 20060301, end: 20080801
  2. RESTASIS [Suspect]
     Indication: POST PROCEDURAL COMPLICATION
     Dosage: 1 DROP EACH EYE 12 HOURS APART
     Dates: start: 20060301, end: 20080801

REACTIONS (4)
  - ADVERSE DRUG REACTION [None]
  - BLEPHARITIS [None]
  - CONJUNCTIVITIS [None]
  - VISION BLURRED [None]
